FAERS Safety Report 11642416 (Version 1)
Quarter: 2015Q4

REPORT INFORMATION
  Report Type: Spontaneous
  Country: BR (occurrence: BR)
  Receive Date: 20151019
  Receipt Date: 20151019
  Transmission Date: 20160304
  Serious: Yes (Other)
  Sender: FDA-Public Use
  Company Number: PHHY2015BR125633

PATIENT
  Age: 88 Year
  Sex: Female
  Weight: 66 kg

DRUGS (2)
  1. EXELON [Suspect]
     Active Substance: RIVASTIGMINE TARTRATE
     Indication: DEMENTIA ALZHEIMER^S TYPE
     Route: 065
  2. EXELON PATCH [Suspect]
     Active Substance: RIVASTIGMINE
     Indication: DEMENTIA ALZHEIMER^S TYPE
     Dosage: 9.5 MG (PATCH 18 MG/10 CM2 30 SYST.), UNK
     Route: 062

REACTIONS (9)
  - Weight decreased [Unknown]
  - Posture abnormal [Unknown]
  - Muscle atrophy [Unknown]
  - General physical health deterioration [Unknown]
  - Dementia Alzheimer^s type [Unknown]
  - Bone density decreased [Unknown]
  - Aphasia [Unknown]
  - Diabetic coma [Unknown]
  - Gait disturbance [Unknown]

NARRATIVE: CASE EVENT DATE: 201410
